FAERS Safety Report 10228894 (Version 3)
Quarter: 2019Q2

REPORT INFORMATION
  Report Type: Report from Study
  Country: ES (occurrence: ES)
  Receive Date: 20140610
  Receipt Date: 20190402
  Transmission Date: 20190711
  Serious: Yes (Death, Hospitalization)
  Sender: FDA-Public Use
  Company Number: ES-ROCHE-1414017

PATIENT
  Age: 66 Year
  Sex: Male
  Weight: 104.2 kg

DRUGS (13)
  1. RED CELL CONCENTRATE [Concomitant]
     Indication: ANAEMIA
     Dosage: 2 CONCENTRATES
     Route: 042
     Dates: start: 20140506, end: 20140506
  2. IRINOTECAN [Suspect]
     Active Substance: IRINOTECAN
     Indication: COLORECTAL ADENOCARCINOMA
     Dosage: START DATE OF LAST CYCLE 12/MAY/2014
     Route: 042
     Dates: start: 20140514
  3. TABCIN (ACETAMINOPHEN) [Concomitant]
     Indication: PAIN
     Dosage: 2.5/5 MG/12 H
     Route: 048
  4. BEVACIZUMAB. [Suspect]
     Active Substance: BEVACIZUMAB
     Indication: COLORECTAL ADENOCARCINOMA
     Route: 042
     Dates: start: 20140514
  5. OXALIPLATIN. [Suspect]
     Active Substance: OXALIPLATIN
     Indication: COLORECTAL ADENOCARCINOMA
     Route: 042
     Dates: start: 20140514
  6. 5-FLUOROURACIL [Suspect]
     Active Substance: FLUOROURACIL
     Indication: COLORECTAL ADENOCARCINOMA
     Dosage: LAST DOSE PRIOR TO SAE: 14/MAY/2014.
     Route: 042
     Dates: start: 20140514
  7. PARACETAMOL [Concomitant]
     Active Substance: ACETAMINOPHEN
     Indication: PAIN
     Route: 048
  8. METAMIZOL [Concomitant]
     Active Substance: METAMIZOLE SODIUM
     Indication: PAIN
     Route: 065
  9. FOLINIC ACID [Suspect]
     Active Substance: LEUCOVORIN
     Indication: COLORECTAL ADENOCARCINOMA
     Route: 042
     Dates: start: 20140514
  10. TELMISARTAN. [Concomitant]
     Active Substance: TELMISARTAN
     Indication: HYPERTENSION
     Route: 048
  11. OMEPRAZOLE. [Concomitant]
     Active Substance: OMEPRAZOLE
     Indication: GASTRIC INFECTION
     Route: 048
  12. FENTANIL [Concomitant]
     Active Substance: FENTANYL
     Indication: PAIN
     Dosage: 25 MCG/72 HRS
     Route: 062
     Dates: start: 20140512
  13. RED CELL CONCENTRATE [Concomitant]
     Dosage: 2 CONCENTRATES
     Route: 042
     Dates: start: 20140513, end: 20140513

REACTIONS (2)
  - Neutropenia [Unknown]
  - Mucosal inflammation [Fatal]

NARRATIVE: CASE EVENT DATE: 20140521
